FAERS Safety Report 8066790-4 (Version None)
Quarter: 2012Q1

REPORT INFORMATION
  Report Type: 
  Country: None (occurrence: None)
  Receive Date: 20120124
  Receipt Date: 20120112
  Transmission Date: 20120608
  Serious: Yes (Other)
  Sender: FDA-Public Use
  Company Number: NL-ELI_LILLY_AND_COMPANY-NL201112002416

PATIENT
  Sex: Female
  Weight: 90 kg

DRUGS (7)
  1. CODEINE PHOSPHATE AND ACETAMINOPHEN [Concomitant]
     Indication: PAIN
     Dosage: 6 DF, QD
     Route: 048
  2. ALBUTEROL SULFATE AUTOHALER [Concomitant]
     Indication: CHRONIC OBSTRUCTIVE PULMONARY DISEASE
     Dosage: 4 DF, QD
     Route: 048
     Dates: start: 20050101
  3. DESLORATADINE [Concomitant]
     Indication: PRURITUS
     Dosage: 1 DF, QD
     Route: 048
  4. FORTEO [Suspect]
     Indication: OSTEOPOROSIS
     Dosage: 20 UG, QD
     Route: 058
     Dates: start: 20110719
  5. SPIRIVA [Concomitant]
     Indication: CHRONIC OBSTRUCTIVE PULMONARY DISEASE
     Dosage: 1 DF, QD
     Route: 055
     Dates: start: 20050101
  6. OXAZEPAM [Concomitant]
     Indication: RELAXATION THERAPY
     Dosage: 10 MG, QD
     Route: 048
     Dates: start: 20030101
  7. FLUTICASONE PROPIONATE/SALMETEROL [Concomitant]
     Indication: CHRONIC OBSTRUCTIVE PULMONARY DISEASE
     Dosage: 4 DF, QD
     Route: 048
     Dates: start: 20050101

REACTIONS (2)
  - AFFECT LABILITY [None]
  - PNEUMONITIS [None]
